FAERS Safety Report 9669986 (Version 3)
Quarter: 2013Q4

REPORT INFORMATION
  Report Type: Report from Study
  Country: RU (occurrence: RU)
  Receive Date: 20131105
  Receipt Date: 20131119
  Transmission Date: 20140711
  Serious: Yes (Death)
  Sender: FDA-Public Use
  Company Number: RU-GLAXOSMITHKLINE-Z0021145B

PATIENT
  Age: 66 Year
  Sex: Male
  Weight: 61 kg

DRUGS (1)
  1. FLUTICASONE PROPIONATE + SALMETEROL XINAFOATE [Suspect]
     Indication: CHRONIC OBSTRUCTIVE PULMONARY DISEASE
     Route: 055
     Dates: start: 20130802

REACTIONS (1)
  - Pneumonia [Fatal]
